APPROVED DRUG PRODUCT: KETAMINE HYDROCHLORIDE
Active Ingredient: KETAMINE HYDROCHLORIDE
Strength: EQ 50MG BASE/ML
Dosage Form/Route: INJECTABLE;INJECTION
Application: A074549 | Product #001 | TE Code: AP
Applicant: HOSPIRA INC
Approved: Jun 27, 1996 | RLD: No | RS: No | Type: RX